FAERS Safety Report 6635360-4 (Version None)
Quarter: 2010Q1

REPORT INFORMATION
  Report Type: 
  Country: None (occurrence: None)
  Receive Date: 20100311
  Receipt Date: 20100311
  Transmission Date: 20100710
  Serious: Yes (Life-Threatening, Disabling)
  Sender: FDA-Public Use
  Company Number: None

PATIENT
  Age: 49 Year
  Weight: 83.9154 kg

DRUGS (1)
  1. FOSAMAX [Suspect]

REACTIONS (1)
  - FEMUR FRACTURE [None]
